FAERS Safety Report 25432474 (Version 1)
Quarter: 2025Q2

REPORT INFORMATION
  Report Type: Spontaneous
  Country: US (occurrence: US)
  Receive Date: 20250613
  Receipt Date: 20250613
  Transmission Date: 20250716
  Serious: Yes (Death, Other)
  Sender: HIKMA
  Company Number: US-HIKMA PHARMACEUTICALS USA INC.-US-H14001-25-04955

PATIENT
  Age: 51 Year
  Sex: Male

DRUGS (5)
  1. FLUOROURACIL SODIUM [Suspect]
     Active Substance: FLUOROURACIL SODIUM
     Indication: Adenocarcinoma pancreas
     Route: 065
  2. IRINOTECAN [Suspect]
     Active Substance: IRINOTECAN
     Indication: Adenocarcinoma pancreas
     Route: 065
  3. LEUCOVORIN [Suspect]
     Active Substance: LEUCOVORIN\LEUCOVORIN CALCIUM
     Indication: Adenocarcinoma pancreas
     Route: 065
  4. METHYLPREDNISOLONE [Suspect]
     Active Substance: METHYLPREDNISOLONE
     Indication: Myelitis transverse
     Dosage: 1 GRAM, QD, 5 DAYS OF HIGH DOSE
     Route: 065
  5. OXALIPLATIN [Suspect]
     Active Substance: OXALIPLATIN
     Indication: Adenocarcinoma pancreas
     Route: 065

REACTIONS (1)
  - Disease progression [Fatal]
